FAERS Safety Report 24962498 (Version 1)
Quarter: 2025Q1

REPORT INFORMATION
  Report Type: Spontaneous
  Country: US (occurrence: US)
  Receive Date: 20250212
  Receipt Date: 20250212
  Transmission Date: 20250409
  Serious: No
  Sender: SANOFI AVENTIS
  Company Number: US-SA-2025SA041581

PATIENT
  Sex: Female
  Weight: 111.36 kg

DRUGS (8)
  1. DUPIXENT [Suspect]
     Active Substance: DUPILUMAB
     Indication: Dermatitis atopic
     Dosage: 300 MG, QOW
     Route: 058
     Dates: end: 202411
  2. DUPIXENT [Suspect]
     Active Substance: DUPILUMAB
     Dosage: 300 MG, QOW
     Route: 058
     Dates: start: 20250205
  3. TELMISARTAN [Concomitant]
     Active Substance: TELMISARTAN
  4. CARVEDILOL [Concomitant]
     Active Substance: CARVEDILOL
  5. OZEMPIC [Concomitant]
     Active Substance: SEMAGLUTIDE
  6. WELLBUTRIN [Concomitant]
     Active Substance: BUPROPION HYDROCHLORIDE
  7. EXEMESTANE [Concomitant]
     Active Substance: EXEMESTANE
  8. PRILOSEC OTC [Concomitant]
     Active Substance: OMEPRAZOLE MAGNESIUM

REACTIONS (1)
  - Dermatitis atopic [Unknown]
